FAERS Safety Report 7228375-9 (Version None)
Quarter: 2011Q1

REPORT INFORMATION
  Report Type: 
  Country: None (occurrence: None)
  Receive Date: 20110114
  Receipt Date: 20101229
  Transmission Date: 20110831
  Serious: Yes (Death)
  Sender: FDA-Public Use
  Company Number: NL-PFIZER INC-2010180888

PATIENT
  Age: 69 Year
  Sex: Male

DRUGS (2)
  1. HYDROCHLOROTHIAZIDE [Suspect]
     Dosage: UNK
  2. SALAZOPYRIN [Suspect]
     Dosage: UNK
     Route: 048
     Dates: start: 19950101

REACTIONS (1)
  - DEATH [None]
